FAERS Safety Report 13381095 (Version 1)
Quarter: 2017Q1

REPORT INFORMATION
  Report Type: Spontaneous
  Country: US (occurrence: US)
  Receive Date: 20170329
  Receipt Date: 20170329
  Transmission Date: 20170429
  Serious: No
  Sender: FDA-Public Use
  Company Number: US-PFIZER INC-2017131560

PATIENT
  Age: 65 Year
  Sex: Male
  Weight: 127 kg

DRUGS (3)
  1. GLIPIZIDE. [Concomitant]
     Active Substance: GLIPIZIDE
     Indication: DIABETES MELLITUS
     Dosage: 20 MG, 2X/DAY, ^2X10MG, TWICE A DAY^
  2. METFORMIN [Concomitant]
     Active Substance: METFORMIN HYDROCHLORIDE
     Dosage: 500 MG, 1X/DAY
  3. AMLODIPINE BESILATE [Suspect]
     Active Substance: AMLODIPINE BESYLATE
     Indication: HYPERTENSION
     Dosage: 10 MG, 1X/DAY
     Route: 048

REACTIONS (6)
  - Foreign body [Unknown]
  - Product physical issue [Unknown]
  - Poor quality drug administered [Unknown]
  - Cough [Unknown]
  - Product difficult to swallow [Unknown]
  - Vomiting [Unknown]
